FAERS Safety Report 4350048-0 (Version None)
Quarter: 2004Q2

REPORT INFORMATION
  Report Type: 
  Country: None (occurrence: None)
  Receive Date: 20040429
  Receipt Date: 20040420
  Transmission Date: 20050107
  Serious: Yes (Other)
  Sender: FDA-Public Use
  Company Number: PHBS2004DE05575

PATIENT
  Age: 79 Year
  Sex: Female

DRUGS (4)
  1. CARBAMAZEPINE [Suspect]
     Indication: SCHIZOAFFECTIVE DISORDER
     Dosage: 400 MG/DAY
     Route: 065
  2. LITHIUM CARBONATE [Suspect]
     Indication: SCHIZOAFFECTIVE DISORDER
     Route: 065
  3. AMISULPRIDE [Suspect]
     Indication: PSYCHOTIC DISORDER
     Dosage: 800 MG/DAY
     Route: 065
  4. AMISULPRIDE [Suspect]
     Dosage: 600 MG/DAY
     Route: 065

REACTIONS (5)
  - CHILLS [None]
  - DIFFICULTY IN WALKING [None]
  - DYSPHAGIA [None]
  - PARKINSONISM [None]
  - WEIGHT DECREASED [None]
